FAERS Safety Report 7558902-3 (Version None)
Quarter: 2011Q2

REPORT INFORMATION
  Report Type: 
  Country: None (occurrence: None)
  Receive Date: 20110613
  Receipt Date: 20110531
  Transmission Date: 20111010
  Serious: Yes (Hospitalization, Other)
  Sender: FDA-Public Use
  Company Number: 117852

PATIENT
  Age: 18 Year
  Sex: Female

DRUGS (1)
  1. DILTIAZEM HCL [Suspect]

REACTIONS (10)
  - HYPERGLYCAEMIA [None]
  - RESPIRATORY FAILURE [None]
  - OLIGURIA [None]
  - INTENTIONAL OVERDOSE [None]
  - MEDICATION ERROR [None]
  - TACHYCARDIA [None]
  - STAPHYLOCOCCAL SEPSIS [None]
  - BLOOD CREATINE INCREASED [None]
  - HYPOTENSION [None]
  - BLOOD LACTIC ACID INCREASED [None]
